FAERS Safety Report 25962129 (Version 2)
Quarter: 2025Q4

REPORT INFORMATION
  Report Type: Spontaneous
  Country: US (occurrence: US)
  Receive Date: 20251027
  Receipt Date: 20251027
  Transmission Date: 20260118
  Serious: No
  Sender: SANDOZ
  Company Number: US-SANDOZ-SDZ2025US078447

PATIENT
  Sex: Male

DRUGS (1)
  1. ALBUTEROL SULFATE [Suspect]
     Active Substance: ALBUTEROL SULFATE
     Indication: Lung disorder
     Dosage: STRENGTH : 90 MCG, DAILY WHEN NEEDED,QD
     Route: 055

REACTIONS (6)
  - Visual impairment [Unknown]
  - Asthma [Unknown]
  - Wrong technique in device usage process [Unknown]
  - Incorrect dose administered [Unknown]
  - Product storage error [Unknown]
  - Device issue [Unknown]

NARRATIVE: CASE EVENT DATE: 20251020
